FAERS Safety Report 20854545 (Version 1)
Quarter: 2022Q2

REPORT INFORMATION
  Report Type: Report from Study
  Country: US (occurrence: US)
  Receive Date: 20220520
  Receipt Date: 20220520
  Transmission Date: 20220720
  Serious: No
  Sender: FDA-Public Use
  Company Number: US-BIOVITRUM-2022US06198

PATIENT
  Age: 49 Year
  Sex: Female

DRUGS (1)
  1. KINERET [Suspect]
     Active Substance: ANAKINRA
     Indication: Connective tissue disorder
     Route: 058
     Dates: start: 201904

REACTIONS (3)
  - Blood immunoglobulin M increased [Unknown]
  - Sensitive skin [Unknown]
  - Off label use [Unknown]

NARRATIVE: CASE EVENT DATE: 20190401
